FAERS Safety Report 19719146 (Version 1)
Quarter: 2021Q3

REPORT INFORMATION
  Report Type: Spontaneous
  Country: US (occurrence: US)
  Receive Date: 20210819
  Receipt Date: 20210819
  Transmission Date: 20211014
  Serious: Yes (Other)
  Sender: FDA-Public Use
  Company Number: None

PATIENT
  Age: 65 Year
  Sex: Female
  Weight: 92.25 kg

DRUGS (2)
  1. GAMMAGARD [Suspect]
     Active Substance: HUMAN IMMUNOGLOBULIN G
     Indication: POLYNEUROPATHY
     Dosage: ?          OTHER FREQUENCY:DAILY FOR 3 DAYS;?
     Route: 042
     Dates: start: 20210818, end: 20210818
  2. GAMMAGARD [Suspect]
     Active Substance: HUMAN IMMUNOGLOBULIN G
     Indication: POLYNEUROPATHY
     Dosage: ?          OTHER FREQUENCY:DAILY FOR 3 DAYS;?
     Route: 042
     Dates: start: 20210818, end: 20210818

REACTIONS (5)
  - Heart rate increased [None]
  - Tremor [None]
  - Nervousness [None]
  - Dehydration [None]
  - Feeling abnormal [None]

NARRATIVE: CASE EVENT DATE: 20210818
